FAERS Safety Report 11122910 (Version 1)
Quarter: 2015Q2

REPORT INFORMATION
  Report Type: Spontaneous
  Country: US (occurrence: None)
  Receive Date: 20150518
  Receipt Date: 20150518
  Transmission Date: 20150821
  Serious: No
  Sender: FDA-Public Use
  Company Number: None

PATIENT
  Age: 65 Year
  Sex: Male
  Weight: 93.44 kg

DRUGS (6)
  1. B6 [Concomitant]
     Active Substance: PYRIDOXINE HYDROCHLORIDE
  2. NOVOLOG [Suspect]
     Active Substance: INSULIN ASPART
     Indication: BLOOD GLUCOSE
  3. CINNAMON. [Concomitant]
     Active Substance: CINNAMON
  4. FISH OIL [Concomitant]
     Active Substance: FISH OIL
  5. NOVOLOG [Suspect]
     Active Substance: INSULIN ASPART
  6. CENTRUM 50 [Concomitant]

REACTIONS (1)
  - Chest pain [None]

NARRATIVE: CASE EVENT DATE: 20150515
